FAERS Safety Report 5753048-9 (Version None)
Quarter: 2008Q2

REPORT INFORMATION
  Report Type: 
  Country: None (occurrence: None)
  Receive Date: 20080527
  Receipt Date: 20080509
  Transmission Date: 20081010
  Serious: Yes (Hospitalization)
  Sender: FDA-Public Use
  Company Number: 2008S1008295

PATIENT
  Age: 48 Year
  Sex: Female

DRUGS (6)
  1. NAPROXEN [Suspect]
     Indication: BACK PAIN
     Dosage: ORAL
     Route: 048
     Dates: start: 20080101, end: 20080311
  2. LOMUDAL NASAL [Concomitant]
  3. CETIRIZINE HCL [Concomitant]
  4. BLOCADREN [Concomitant]
  5. CENTYL MED KALIUMKLORID [Concomitant]
  6. IMIGRAN [Concomitant]

REACTIONS (4)
  - DIARRHOEA [None]
  - HAEMATOCHEZIA [None]
  - MUCOUS STOOLS [None]
  - PROCTOCOLITIS [None]
